FAERS Safety Report 4299297-0 (Version None)
Quarter: 2004Q1

REPORT INFORMATION
  Report Type: 
  Country: None (occurrence: None)
  Receive Date: 20040217
  Receipt Date: 20040205
  Transmission Date: 20041129
  Serious: Yes (Other)
  Sender: FDA-Public Use
  Company Number: USA-2004-0012845

PATIENT
  Sex: Male

DRUGS (2)
  1. OXYCONTIN [Suspect]
  2. NALTREXONE (NALTREXONE) [Suspect]

REACTIONS (4)
  - BRAIN STEM INFARCTION [None]
  - COMA [None]
  - DETOXIFICATION [None]
  - DRUG DEPENDENCE [None]
